FAERS Safety Report 5753097-0 (Version None)
Quarter: 2008Q2

REPORT INFORMATION
  Report Type: 
  Country: None (occurrence: None)
  Receive Date: 20080527
  Receipt Date: 20080512
  Transmission Date: 20081010
  Serious: Yes (Hospitalization, Other)
  Sender: FDA-Public Use
  Company Number: 2008-01613

PATIENT
  Age: 67 Year
  Sex: Male
  Weight: 94.8 kg

DRUGS (22)
  1. VELCADE [Suspect]
     Indication: MULTIPLE MYELOMA
     Dosage: 1MG/M2
     Route: 042
     Dates: start: 20060503
  2. DEXAMETHASONE TAB [Suspect]
     Indication: MULTIPLE MYELOMA
     Dosage: 40 MG, ORAL; 12 MG, ORAL
     Route: 048
     Dates: start: 20060502
  3. THALIDOMIDE [Suspect]
     Indication: MULTIPLE MYELOMA
     Dosage: 200 MG, ORAL; 50 MG, ORAL
     Route: 048
     Dates: start: 20080503
  4. MELPHALAN(MELPHALAN) VIAL [Suspect]
     Indication: MULTIPLE MYELOMA
     Dosage: 200 MG, INTRAVENOUS; 140 MG/M2, INTRAVENOUS
     Route: 042
     Dates: start: 20060723, end: 20060723
  5. MELPHALAN(MELPHALAN) VIAL [Suspect]
     Indication: MULTIPLE MYELOMA
     Dosage: 200 MG, INTRAVENOUS; 140 MG/M2, INTRAVENOUS
     Route: 042
     Dates: start: 20061127, end: 20061127
  6. CISPLATIN [Suspect]
     Indication: MULTIPLE MYELOMA
     Dosage: 10 MG/M2, IV; 7.5 MG/M2, IV
     Route: 042
     Dates: end: 20070526
  7. CISPLATIN [Suspect]
     Indication: MULTIPLE MYELOMA
     Dosage: 10 MG/M2, IV; 7.5 MG/M2, IV
     Route: 042
     Dates: start: 20060503
  8. DOXORUBICIN HCL [Suspect]
     Indication: MULTIPLE MYELOMA
     Dosage: 10 MG/M2, INTRAVENOUS; 7.5 MG/M2, INTRAVENOUS
     Route: 042
     Dates: end: 20070526
  9. DOXORUBICIN HCL [Suspect]
     Indication: MULTIPLE MYELOMA
     Dosage: 10 MG/M2, INTRAVENOUS; 7.5 MG/M2, INTRAVENOUS
     Route: 042
     Dates: start: 20060503
  10. CYCLOPHOSPHAMIDE [Suspect]
     Indication: MULTIPLE MYELOMA
     Dosage: 400 MG/M2, IV; 300 MG/M2, IV
     Route: 042
     Dates: end: 20070526
  11. CYCLOPHOSPHAMIDE [Suspect]
     Indication: MULTIPLE MYELOMA
     Dosage: 400 MG/M2, IV; 300 MG/M2, IV
     Route: 042
     Dates: start: 20060503
  12. ETOPOSIDE [Suspect]
     Indication: MULTIPLE MYELOMA
     Dosage: 40 MG/M2, INTRAVENOUS;
     Route: 042
     Dates: end: 20070526
  13. ETOPOSIDE [Suspect]
     Indication: MULTIPLE MYELOMA
     Dosage: 40 MG/M2, INTRAVENOUS;
     Route: 042
     Dates: start: 20060603
  14. LEVOTHYROXINE SODIUM [Concomitant]
  15. VYTORIN [Concomitant]
  16. ACYCLOVIR SODIUM [Concomitant]
  17. ASPIRIN [Concomitant]
  18. GLIPIZIDE [Concomitant]
  19. LYRICA [Concomitant]
  20. METFORMIN HCL [Concomitant]
  21. MULTIVITAMIN [Concomitant]
  22. TOPROL-XL [Concomitant]

REACTIONS (26)
  - ABDOMINAL ABSCESS [None]
  - BLOOD CULTURE POSITIVE [None]
  - BOWEL PREPARATION [None]
  - COLONIC OBSTRUCTION [None]
  - COLOSTOMY [None]
  - COMPUTERISED TOMOGRAM NORMAL [None]
  - CONDITION AGGRAVATED [None]
  - CULTURE WOUND POSITIVE [None]
  - DIVERTICULAR PERFORATION [None]
  - DIVERTICULITIS [None]
  - DRUG INTOLERANCE [None]
  - DYSPHAGIA [None]
  - DYSPNOEA [None]
  - ENTEROCOCCAL INFECTION [None]
  - FEEDING TUBE COMPLICATION [None]
  - FUNGAL INFECTION [None]
  - HYPOTENSION [None]
  - INTESTINAL ISCHAEMIA [None]
  - NAUSEA [None]
  - PSEUDOMONAS INFECTION [None]
  - SEPSIS [None]
  - SEROMA [None]
  - STEM CELL TRANSPLANT [None]
  - URINE OUTPUT DECREASED [None]
  - VOMITING [None]
  - WOUND INFECTION [None]
